FAERS Safety Report 18229893 (Version 2)
Quarter: 2020Q4

REPORT INFORMATION
  Report Type: Spontaneous
  Country: GB (occurrence: GB)
  Receive Date: 20200904
  Receipt Date: 20201119
  Transmission Date: 20210113
  Serious: Yes (Hospitalization)
  Sender: FDA-Public Use
  Company Number: GB-AMGEN-GBRSP2020140096

PATIENT
  Age: 53 Year
  Sex: Female

DRUGS (2)
  1. AMGEVITA [Suspect]
     Active Substance: ADALIMUMAB
     Indication: CROHN^S DISEASE
     Dosage: 80 MILLIGRAM, QWK
     Route: 058
     Dates: start: 2019
  2. AMGEVITA [Suspect]
     Active Substance: ADALIMUMAB
     Dosage: 40 MILLIGRAM, QWK
     Route: 058
     Dates: start: 2019

REACTIONS (2)
  - Unevaluable event [Unknown]
  - Product use issue [Unknown]

NARRATIVE: CASE EVENT DATE: 2019
